FAERS Safety Report 17438586 (Version 3)
Quarter: 2020Q2

REPORT INFORMATION
  Report Type: Spontaneous
  Country: CO (occurrence: CO)
  Receive Date: 20200220
  Receipt Date: 20200407
  Transmission Date: 20200713
  Serious: Yes (Hospitalization, Other)
  Sender: FDA-Public Use
  Company Number: CO-ROCHE-2536176

PATIENT
  Sex: Male

DRUGS (3)
  1. MABTHERA [Suspect]
     Active Substance: RITUXIMAB
     Indication: NEUROMYELITIS OPTICA SPECTRUM DISORDER
     Dosage: DOSE UNKNOWN
     Route: 065
  2. MABTHERA [Suspect]
     Active Substance: RITUXIMAB
     Route: 065
     Dates: start: 2014, end: 2014
  3. ACTEMRA [Suspect]
     Active Substance: TOCILIZUMAB
     Indication: OPTIC NEUROPATHY
     Dosage: DOSE UNKNOWN? RECEIVED RECENT DOSE OF TOCILIZUMAB WAS ON 27/APR/2019,
     Route: 042
     Dates: start: 2014

REACTIONS (14)
  - Lung perforation [Recovered/Resolved]
  - Intentional product use issue [Unknown]
  - Product administration error [Unknown]
  - Visual acuity reduced [Recovered/Resolved]
  - Osteoporosis [Recovering/Resolving]
  - Infection [Recovered/Resolved]
  - Cardiac disorder [Recovered/Resolved]
  - Arrhythmia [Recovered/Resolved]
  - Cataract [Recovering/Resolving]
  - Optic neuropathy [Recovering/Resolving]
  - Off label use [Unknown]
  - Abscess [Recovered/Resolved]
  - Thrombosis [Recovered/Resolved]
  - Gait disturbance [Recovering/Resolving]
